FAERS Safety Report 6196919-4 (Version None)
Quarter: 2009Q2

REPORT INFORMATION
  Report Type: 
  Country: None (occurrence: None)
  Receive Date: 20090518
  Receipt Date: 20090518
  Transmission Date: 20091009
  Serious: Yes (Other)
  Sender: FDA-Public Use
  Company Number: None

PATIENT
  Age: 51 Year
  Sex: Female
  Weight: 104.3273 kg

DRUGS (2)
  1. VALIUM [Suspect]
     Indication: GENERALISED ANXIETY DISORDER
     Dosage: 5 MG
     Dates: start: 20080101
  2. VALIUM [Suspect]
     Indication: PANIC DISORDER
     Dosage: 5 MG
     Dates: start: 20080101

REACTIONS (2)
  - DIZZINESS [None]
  - SOMNOLENCE [None]
